FAERS Safety Report 24906346 (Version 1)
Quarter: 2025Q1

REPORT INFORMATION
  Report Type: Spontaneous
  Country: RU (occurrence: RU)
  Receive Date: 20250130
  Receipt Date: 20250130
  Transmission Date: 20250409
  Serious: Yes (Hospitalization, Other)
  Sender: AMGEN
  Company Number: RU-AMGEN-RUSSP2025014667

PATIENT
  Age: 43 Year
  Sex: Female
  Weight: 51 kg

DRUGS (5)
  1. PROLIA [Suspect]
     Active Substance: DENOSUMAB
     Indication: Osteoporosis
     Dosage: 60 MILLIGRAM, Q6MO (FOUR INJECTIONS) (RECEIVED FOR 2 YEARS)
     Route: 065
  2. ALFACALCIDOL [Concomitant]
     Active Substance: ALFACALCIDOL
     Indication: Hypophosphataemia
     Dosage: 0.5 MICROGRAM, QD
     Route: 065
  3. ALFACALCIDOL [Concomitant]
     Active Substance: ALFACALCIDOL
     Dosage: 0.5 MICROGRAM, QD
     Route: 065
  4. CALCIUM CARBONATE [Concomitant]
     Active Substance: CALCIUM CARBONATE
     Route: 065
  5. CALCIUM CARBONATE [Concomitant]
     Active Substance: CALCIUM CARBONATE
     Route: 065

REACTIONS (11)
  - Humerus fracture [Unknown]
  - Cervical vertebral fracture [Unknown]
  - Spinal fracture [Unknown]
  - Blood glucose increased [Recovering/Resolving]
  - Vitamin D deficiency [Unknown]
  - Hyperparathyroidism primary [Recovered/Resolved]
  - Hypophosphataemia [Recovered/Resolved]
  - Pelvic fracture [Unknown]
  - Radius fracture [Unknown]
  - Tibia fracture [Unknown]
  - Shoulder fracture [Unknown]
